FAERS Safety Report 6337123-6 (Version None)
Quarter: 2009Q3

REPORT INFORMATION
  Report Type: 
  Country: None (occurrence: None)
  Receive Date: 20090831
  Receipt Date: 20090814
  Transmission Date: 20100115
  Serious: Yes (Other)
  Sender: FDA-Public Use
  Company Number: AUR-APL-2009-00433

PATIENT
  Age: 64 Year
  Sex: Male

DRUGS (4)
  1. FINASTERIDE [Suspect]
     Indication: BENIGN PROSTATIC HYPERPLASIA
     Dosage: 5 MG, DAILY, ORAL
     Route: 048
     Dates: start: 20090101, end: 20090501
  2. ASPIRIN [Concomitant]
  3. DILTIAZEM [Concomitant]
  4. SIMVASTATIN [Concomitant]

REACTIONS (1)
  - DEPRESSION [None]
